FAERS Safety Report 12671069 (Version 1)
Quarter: 2016Q3

REPORT INFORMATION
  Report Type: Spontaneous
  Country: US (occurrence: None)
  Receive Date: 20160819
  Receipt Date: 20160819
  Transmission Date: 20161109
  Serious: Yes (Other)
  Sender: FDA-Public Use
  Company Number: None

PATIENT
  Age: 73 Year
  Sex: Male

DRUGS (1)
  1. REPATHA [Suspect]
     Active Substance: EVOLOCUMAB
     Indication: HYPERCHOLESTEROLAEMIA
     Dosage: 140MG EVERY 2 WEEKS SUBCUTANEOUSLY
     Route: 058
     Dates: start: 20160701

REACTIONS (3)
  - Myalgia [None]
  - Muscle spasms [None]
  - Chromaturia [None]

NARRATIVE: CASE EVENT DATE: 20160808
